FAERS Safety Report 7555993-0 (Version None)
Quarter: 2011Q2

REPORT INFORMATION
  Report Type: 
  Country: None (occurrence: None)
  Receive Date: 20110620
  Receipt Date: 20110606
  Transmission Date: 20111010
  Serious: Yes (Death, Other)
  Sender: FDA-Public Use
  Company Number: FR-BRISTOL-MYERS SQUIBB COMPANY-15807555

PATIENT
  Age: 60 Year
  Sex: Female

DRUGS (1)
  1. SPRYCEL [Suspect]
     Indication: CHRONIC MYELOID LEUKAEMIA
     Dates: start: 20090701, end: 20100301

REACTIONS (4)
  - PLEURAL EFFUSION [None]
  - SKIN REACTION [None]
  - CLOSTRIDIUM DIFFICILE COLITIS [None]
  - PULMONARY ARTERIAL HYPERTENSION [None]
